FAERS Safety Report 5677201-8 (Version None)
Quarter: 2008Q1

REPORT INFORMATION
  Report Type: 
  Country: None (occurrence: None)
  Receive Date: 20080318
  Receipt Date: 20080310
  Transmission Date: 20080703
  Serious: Yes (Hospitalization)
  Sender: FDA-Public Use
  Company Number: 025056

PATIENT
  Age: 19 Year
  Sex: Male

DRUGS (2)
  1. METHYLPREDNISOLONE [Suspect]
     Indication: MIGRAINE
     Dosage: 100 MG, BID, INTRAVENOUS
     Route: 042
  2. DIHYDROERGOTAMINE MESYLATE [Concomitant]

REACTIONS (3)
  - ARTHRALGIA [None]
  - JOINT SWELLING [None]
  - OSTEONECROSIS [None]
